FAERS Safety Report 7945479-3 (Version None)
Quarter: 2011Q4

REPORT INFORMATION
  Report Type: 
  Country: None (occurrence: None)
  Receive Date: 20111121
  Receipt Date: 20111114
  Transmission Date: 20120403
  Serious: Yes (Life-Threatening, Hospitalization, Disabling)
  Sender: FDA-Public Use
  Company Number: 2011SP053507

PATIENT
  Age: 47 Year
  Sex: Male

DRUGS (11)
  1. PEG-INTRON [Suspect]
  2. NAPROXEN [Concomitant]
  3. LAMICTAL [Concomitant]
  4. ABILIFY [Concomitant]
  5. ZANTAC   /00550801/ [Concomitant]
  6. GEODON [Concomitant]
  7. VICTRELIS [Suspect]
     Dosage: 800 MG;TID;PO
     Route: 048
     Dates: start: 20110601
  8. KLONOPIN [Concomitant]
  9. RIBAVIRIN [Suspect]
  10. CELEXA [Concomitant]
  11. METHADONE HYDROCHLORIDE [Concomitant]

REACTIONS (1)
  - PULMONARY EMBOLISM [None]
